FAERS Safety Report 5384265-8 (Version None)
Quarter: 2007Q3

REPORT INFORMATION
  Report Type: 
  Country: None (occurrence: None)
  Receive Date: 20070703
  Receipt Date: 20061016
  Transmission Date: 20080115
  Serious: Yes (Hospitalization)
  Sender: FDA-Public Use
  Company Number: 2006-BP-12359BP

PATIENT
  Age: 41 Year
  Sex: Male
  Weight: 79.38 kg

DRUGS (10)
  1. MIRAPEX [Suspect]
     Indication: PARKINSON'S DISEASE
     Dosage: 0.375 MG (0.125 MG,3 IN 1 D),PO ; 1.5 MG (0.5 MG,TID),PO ; 1.125 MG, (0.375 MG,TID),PO
     Route: 048
     Dates: start: 20040113, end: 20041201
  2. MIRAPEX [Suspect]
     Indication: PARKINSON'S DISEASE
     Dosage: 0.375 MG (0.125 MG,3 IN 1 D),PO ; 1.5 MG (0.5 MG,TID),PO ; 1.125 MG, (0.375 MG,TID),PO
     Route: 048
     Dates: start: 20040101
  3. MIRAPEX [Suspect]
     Indication: PARKINSON'S DISEASE
     Dosage: 0.375 MG (0.125 MG,3 IN 1 D),PO ; 1.5 MG (0.5 MG,TID),PO ; 1.125 MG, (0.375 MG,TID),PO
     Route: 048
     Dates: start: 20040101
  4. SUMINAROLE (ALL OTHER THERAPEUTIC PRODUCTS) [Suspect]
     Dates: start: 20040101, end: 20040101
  5. ASPIRIN [Concomitant]
  6. TOPROL-XL [Concomitant]
  7. LIPITOR [Concomitant]
  8. ALTACE [Concomitant]
  9. PLAVIX [Concomitant]
  10. SINEMET [Concomitant]

REACTIONS (8)
  - BIPOLAR DISORDER [None]
  - CHEST PAIN [None]
  - DRUG EFFECT DECREASED [None]
  - DYSKINESIA [None]
  - GAIT DISTURBANCE [None]
  - MOTION SICKNESS [None]
  - MUSCULOSKELETAL STIFFNESS [None]
  - MYOCARDIAL INFARCTION [None]
